FAERS Safety Report 5501493-9 (Version None)
Quarter: 2007Q4

REPORT INFORMATION
  Report Type: 
  Country: None (occurrence: None)
  Receive Date: 20071019
  Receipt Date: 20070910
  Transmission Date: 20080405
  Serious: Yes (Other)
  Sender: FDA-Public Use
  Company Number: HQWYE130212SEP07

PATIENT
  Age: 43 Year
  Sex: Female
  Weight: 103.97 kg

DRUGS (2)
  1. ADVIL PM [Suspect]
     Indication: INSOMNIA
     Dosage: 2 CAPLETS, 4 TIMES, ORAL
     Route: 048
     Dates: start: 20070801, end: 20070908
  2. ADVIL PM [Suspect]
     Indication: PAIN
     Dosage: 2 CAPLETS, 4 TIMES, ORAL
     Route: 048
     Dates: start: 20070801, end: 20070908

REACTIONS (1)
  - RESTLESS LEGS SYNDROME [None]
